FAERS Safety Report 10755793 (Version 1)
Quarter: 2015Q1

REPORT INFORMATION
  Report Type: Spontaneous
  Country: GR (occurrence: GR)
  Receive Date: 20150202
  Receipt Date: 20150202
  Transmission Date: 20150721
  Serious: Yes (Hospitalization)
  Sender: FDA-Public Use
  Company Number: GR-PFIZER INC-2015042318

PATIENT
  Age: 70 Year
  Sex: Male

DRUGS (3)
  1. MEROPENEM. [Concomitant]
     Active Substance: MEROPENEM
     Indication: ABDOMINAL INFECTION
     Dosage: 2 G, 3X/DAY
     Route: 042
     Dates: start: 20140512
  2. TIGECYCLINE [Suspect]
     Active Substance: TIGECYCLINE
     Indication: ABDOMINAL INFECTION
     Dosage: 50 MG, 2X/DAY
     Route: 042
     Dates: start: 20140512, end: 20140517
  3. COLISTIN [Concomitant]
     Active Substance: COLISTIN
     Indication: ABDOMINAL INFECTION
     Dosage: 4.5MU, 2X/DAY
     Dates: start: 20140512

REACTIONS (1)
  - Hypofibrinogenaemia [Recovered/Resolved]

NARRATIVE: CASE EVENT DATE: 20140516
